FAERS Safety Report 18080460 (Version 2)
Quarter: 2021Q1

REPORT INFORMATION
  Report Type: Spontaneous
  Country: US (occurrence: US)
  Receive Date: 20200728
  Receipt Date: 20210202
  Transmission Date: 20210419
  Serious: Yes (Other)
  Sender: FDA-Public Use
  Company Number: US-TAKEDA-2020TUS032340

PATIENT
  Sex: Female
  Weight: 81.18 kg

DRUGS (2)
  1. DEXAMETHASONE. [Suspect]
     Active Substance: DEXAMETHASONE
     Indication: PRODUCT USED FOR UNKNOWN INDICATION
     Dosage: UNK
     Route: 065
  2. NINLARO [Suspect]
     Active Substance: IXAZOMIB CITRATE
     Indication: PLASMA CELL MYELOMA
     Dosage: 4 MILLIGRAM
     Route: 065
     Dates: start: 20181026, end: 202101

REACTIONS (6)
  - Fall [Unknown]
  - Dementia [Unknown]
  - Paraesthesia [Unknown]
  - Atrophy [Unknown]
  - Hypoaesthesia [Unknown]
  - Pain in extremity [Unknown]
